FAERS Safety Report 13738649 (Version 1)
Quarter: 2017Q3

REPORT INFORMATION
  Report Type: Report from Study
  Country: US (occurrence: US)
  Receive Date: 20170710
  Receipt Date: 20170710
  Transmission Date: 20171127
  Serious: Yes (Other)
  Sender: FDA-Public Use
  Company Number: US-SAOL THERAPEUTICS-2017SAO00183

PATIENT
  Age: 44 Year
  Sex: Female

DRUGS (12)
  1. CLONIDINE. [Suspect]
     Active Substance: CLONIDINE
     Dosage: 100.55 ?G, \DAY
     Route: 037
     Dates: start: 20150917
  2. COMPOUNDED BACLOFEN [Suspect]
     Active Substance: BACLOFEN
     Dosage: 268.13 ?G, \DAY
     Route: 037
     Dates: start: 20150917
  3. CLONIDINE. [Suspect]
     Active Substance: CLONIDINE
     Dosage: 144.71 ?G, \DAY
     Route: 037
     Dates: start: 20160526
  4. BUPIVACAINE. [Suspect]
     Active Substance: BUPIVACAINE
     Dosage: 10.055 MG, \DAY
     Route: 037
     Dates: start: 20150917
  5. COMPOUNDED BACLOFEN [Suspect]
     Active Substance: BACLOFEN
     Dosage: 385.89 ?G, \DAY
     Route: 037
     Dates: start: 20160526
  6. COMPOUNDED BACLOFEN [Suspect]
     Active Substance: BACLOFEN
     Dosage: 330.64 ?G, \DAY
     Route: 037
     Dates: start: 20150917
  7. DILAUDID [Suspect]
     Active Substance: HYDROMORPHONE HYDROCHLORIDE
     Dosage: 3.352 MG, \DAY
     Route: 037
     Dates: start: 20150917
  8. DILAUDID [Suspect]
     Active Substance: HYDROMORPHONE HYDROCHLORIDE
     Dosage: 4.824 MG, \DAY
     Route: 037
     Dates: start: 20160526
  9. DILAUDID [Suspect]
     Active Substance: HYDROMORPHONE HYDROCHLORIDE
     Dosage: 4.133 MG, \DAY
     Route: 037
     Dates: start: 20150917
  10. BUPIVACAINE. [Suspect]
     Active Substance: BUPIVACAINE
     Dosage: 14.471 MG, \DAY
     Route: 037
     Dates: start: 20160526
  11. BUPIVACAINE. [Suspect]
     Active Substance: BUPIVACAINE
     Dosage: 12.399 MG, \DAY
     Route: 037
     Dates: start: 20150917
  12. CLONIDINE. [Suspect]
     Active Substance: CLONIDINE
     Dosage: 123.99 ?G, \DAY
     Route: 037
     Dates: start: 20150917

REACTIONS (7)
  - Withdrawal syndrome [Unknown]
  - Nausea [Unknown]
  - Device kink [Unknown]
  - Pain [Unknown]
  - Device infusion issue [Unknown]
  - Vomiting [Unknown]
  - Temperature intolerance [Unknown]

NARRATIVE: CASE EVENT DATE: 20160118
